FAERS Safety Report 7197887-9 (Version None)
Quarter: 2010Q4

REPORT INFORMATION
  Report Type: 
  Country: None (occurrence: None)
  Receive Date: 20101227
  Receipt Date: 20101220
  Transmission Date: 20110411
  Serious: Yes (Hospitalization)
  Sender: FDA-Public Use
  Company Number: DE-ROCHE-737521

PATIENT
  Sex: Female
  Weight: 93.8 kg

DRUGS (13)
  1. MYCOPHENOLATE MOFETIL [Suspect]
     Indication: TRANSPLANT
     Dosage: FREQUENCY 1-0-1, LAST DOSE PRIOR TO SAE 02 SEP 2010
     Route: 048
     Dates: start: 20100422
  2. TACROLIMUS [Suspect]
     Indication: TRANSPLANT
     Dosage: LAST DOSE PRIOR TO SAE 02 SEP 2010
     Route: 048
     Dates: start: 20100422
  3. BASILIXIMAB [Suspect]
     Indication: TRANSPLANT
     Dosage: LAST DOSE PRIOR TO SAE 26 APR 2010
     Route: 042
     Dates: start: 20100422
  4. PREDNISONE [Suspect]
     Indication: TRANSPLANT
     Dosage: LAST DOSE PRIOR TO SAE: 29 APRIL 2010.
     Route: 048
     Dates: start: 20100422
  5. PREDNISONE [Suspect]
     Dosage: LAST DOSE PRIOR TO SAE 02 SEP 2010
     Route: 048
  6. BELOC-ZOK [Concomitant]
  7. AMLODIPINE [Concomitant]
  8. MOXONIDINE [Concomitant]
  9. PANTOZOL [Concomitant]
  10. COTRIM [Concomitant]
  11. ROCEPHIN [Concomitant]
     Dates: start: 20100518, end: 20100527
  12. CIPRO [Concomitant]
     Dates: start: 20100514, end: 20100518
  13. TOREM [Concomitant]

REACTIONS (3)
  - LYMPHOCELE [None]
  - TRANSPLANT REJECTION [None]
  - URINARY TRACT INFECTION [None]
